FAERS Safety Report 8513253-5 (Version None)
Quarter: 2012Q3

REPORT INFORMATION
  Report Type: 
  Country: None (occurrence: None)
  Receive Date: 20120716
  Receipt Date: 20120705
  Transmission Date: 20120928
  Serious: Yes (Death)
  Sender: FDA-Public Use
  Company Number: JP-BAXTER-2012BAX011076

PATIENT
  Sex: Male

DRUGS (27)
  1. POVIDONE IODINE [Suspect]
     Dates: start: 20090527
  2. OLOPATADINE HCL [Concomitant]
     Route: 048
     Dates: start: 20100301, end: 20100317
  3. VALTREX [Concomitant]
     Route: 048
     Dates: start: 20100307, end: 20100312
  4. CYCLOPHOSPHAMIDE [Suspect]
     Route: 048
     Dates: start: 20090525
  5. PIRFENIDONE [Suspect]
     Route: 048
     Dates: start: 20091130, end: 20091214
  6. PREDNISOLONE [Suspect]
     Indication: IDIOPATHIC PULMONARY FIBROSIS
     Route: 048
     Dates: start: 20061222, end: 20111012
  7. GENTAMICIN SULFATE [Concomitant]
     Route: 061
     Dates: start: 20100301, end: 20100304
  8. CYCLOPHOSPHAMIDE [Suspect]
     Indication: IDIOPATHIC PULMONARY FIBROSIS
     Route: 048
     Dates: start: 20061222, end: 20070319
  9. SULFAMETHOXAZOLE AND TRIMETHOPRIM [Suspect]
     Route: 048
     Dates: start: 20070321
  10. PROPETO [Concomitant]
     Route: 061
     Dates: start: 20100304, end: 20100317
  11. CYCLOPHOSPHAMIDE [Suspect]
     Route: 048
     Dates: start: 20080818, end: 20090524
  12. PREDNISOLONE [Suspect]
  13. MICONAZOLE [Concomitant]
     Indication: ORAL CANDIDIASIS
     Route: 048
     Dates: start: 20100308, end: 20120315
  14. NEORAL [Concomitant]
     Indication: IDIOPATHIC PULMONARY FIBROSIS
     Route: 048
     Dates: start: 20100420, end: 20100424
  15. MUCODYNE [Suspect]
     Route: 048
     Dates: start: 20070417
  16. FLOMAX [Concomitant]
     Route: 048
     Dates: start: 20100301, end: 20100304
  17. HIBIDIL [Concomitant]
     Route: 061
     Dates: start: 20100301, end: 20100304
  18. PIRFENIDONE [Suspect]
     Route: 048
     Dates: start: 20091214, end: 20100707
  19. ASPIRIN [Suspect]
     Route: 048
     Dates: start: 20061222
  20. MUCOSOLVAN [Suspect]
     Route: 048
     Dates: start: 20071023
  21. ACTONEL [Suspect]
     Route: 048
     Dates: start: 20090526
  22. ARASENA-A [Concomitant]
     Route: 061
     Dates: start: 20091214, end: 20100329
  23. NEORAL [Concomitant]
     Route: 048
     Dates: start: 20100425
  24. CYCLOPHOSPHAMIDE [Suspect]
     Route: 048
     Dates: start: 20070320, end: 20080817
  25. PIRFENIDONE [Suspect]
     Indication: IDIOPATHIC PULMONARY FIBROSIS
     Route: 048
     Dates: start: 20091116, end: 20091130
  26. PIRFENIDONE [Suspect]
     Route: 048
     Dates: start: 20100707
  27. ZOLPIDEM [Suspect]
     Route: 048
     Dates: start: 20070123

REACTIONS (5)
  - DRUG ERUPTION [None]
  - ORAL CANDIDIASIS [None]
  - ORAL HERPES [None]
  - PNEUMONIA [None]
  - DECREASED APPETITE [None]
